FAERS Safety Report 9884907 (Version 1)
Quarter: 2014Q1

REPORT INFORMATION
  Report Type: Report from Study
  Country: US (occurrence: US)
  Receive Date: 20140210
  Receipt Date: 20140210
  Transmission Date: 20141002
  Serious: Yes (Death)
  Sender: FDA-Public Use
  Company Number: US-ROCHE-1324662

PATIENT
  Age: 72 Year
  Sex: Female

DRUGS (8)
  1. AVASTIN [Suspect]
     Indication: MALIGNANT MELANOMA
     Dosage: 800MG
     Route: 042
     Dates: start: 20110324
  2. TAXOL [Concomitant]
     Route: 042
  3. CARBOPLATIN [Concomitant]
     Route: 042
     Dates: start: 20110324
  4. DECADRON [Concomitant]
     Route: 042
  5. ZANTAC [Concomitant]
     Route: 042
  6. TYLENOL [Concomitant]
     Route: 048
  7. BENADRYL (UNITED STATES) [Concomitant]
     Route: 042
  8. ALOXI [Concomitant]
     Route: 042

REACTIONS (2)
  - Death [Fatal]
  - Off label use [Unknown]
